FAERS Safety Report 6649551-X (Version None)
Quarter: 2010Q1

REPORT INFORMATION
  Report Type: 
  Country: None (occurrence: None)
  Receive Date: 20100324
  Receipt Date: 20100324
  Transmission Date: 20100710
  Serious: Yes (Life-Threatening)
  Sender: FDA-Public Use
  Company Number: None

PATIENT
  Age: 70 Year
  Sex: Female
  Weight: 59.4212 kg

DRUGS (2)
  1. DIOVAN [Suspect]
     Indication: DEVICE MALFUNCTION
     Dosage: DAILY
     Dates: start: 20091101, end: 20100201
  2. DIOVAN [Suspect]
     Indication: HYPERTENSION
     Dosage: DAILY
     Dates: start: 20091101, end: 20100201

REACTIONS (3)
  - HYPERHIDROSIS [None]
  - PRODUCTIVE COUGH [None]
  - WEIGHT DECREASED [None]
